FAERS Safety Report 9301658 (Version 2)
Quarter: 2013Q2

REPORT INFORMATION
  Report Type: Spontaneous
  Country: IT (occurrence: IT)
  Receive Date: 20130521
  Receipt Date: 20130617
  Transmission Date: 20140414
  Serious: Yes (Hospitalization)
  Sender: FDA-Public Use
  Company Number: IT-MYLANLABS-2013S1010240

PATIENT
  Age: 54 Year
  Sex: Female

DRUGS (4)
  1. METFORMIN HYDROCHLORIDE [Suspect]
     Indication: DIABETES MELLITUS
     Route: 048
     Dates: start: 20050101, end: 20130223
  2. SOLOSA [Concomitant]
     Indication: DIABETES MELLITUS
     Dosage: 4 MG TABLETS
  3. ENAPREN [Concomitant]
     Indication: HYPERTENSION
     Dosage: 20 MG TABLETS
  4. EUTIROX [Concomitant]
     Indication: THYROIDITIS
     Dosage: 75 UG TABLETS

REACTIONS (3)
  - Renal failure acute [Recovered/Resolved]
  - Hypoglycaemia [Recovered/Resolved]
  - Metabolic acidosis [Recovered/Resolved]
